FAERS Safety Report 5473547-7 (Version None)
Quarter: 2007Q4

REPORT INFORMATION
  Report Type: 
  Country: None (occurrence: None)
  Receive Date: 20071001
  Receipt Date: 20031216
  Transmission Date: 20080405
  Serious: Yes (Other)
  Sender: FDA-Public Use
  Company Number: US-PFIZER INC-2003125311

PATIENT
  Sex: Male
  Weight: 80.7 kg

DRUGS (5)
  1. VIAGRA [Suspect]
     Indication: ARTERIAL DISORDER
     Dosage: DAILY DOSE:50MG
     Route: 048
  2. GRAPEFRUIT JUICE [Suspect]
     Route: 048
  3. COSOPT [Concomitant]
  4. ALPHAGAN [Concomitant]
  5. LEVOTHROID [Concomitant]

REACTIONS (4)
  - BODY HEIGHT DECREASED [None]
  - FOOD INTERACTION [None]
  - HYPOTENSION [None]
  - PROSTATE CANCER [None]
